FAERS Safety Report 26109391 (Version 1)
Quarter: 2025Q4

REPORT INFORMATION
  Report Type: Report from Study
  Country: TH (occurrence: TH)
  Receive Date: 20251201
  Receipt Date: 20251201
  Transmission Date: 20260118
  Serious: Yes (Other)
  Sender: BAYER HEALTHCARE PHARMACEUTICALS INC.
  Company Number: TH-BAYER-2025A154181

PATIENT
  Age: 44 Year
  Sex: Female

DRUGS (1)
  1. STIVARGA [Suspect]
     Active Substance: REGORAFENIB MONOHYDRATE
     Indication: Colorectal cancer
     Dosage: 80 MG, QD 3 WEEKS ON, 1 WEEK OFF
     Route: 048
     Dates: start: 20250616, end: 20250916

REACTIONS (4)
  - Gait inability [None]
  - Drug ineffective [Unknown]
  - Pain in extremity [Unknown]
  - Product use issue [None]

NARRATIVE: CASE EVENT DATE: 20250101
